FAERS Safety Report 11603645 (Version 1)
Quarter: 2015Q4

REPORT INFORMATION
  Report Type: Spontaneous
  Country: RO (occurrence: RO)
  Receive Date: 20151007
  Receipt Date: 20151007
  Transmission Date: 20160304
  Serious: Yes (Death, Other)
  Sender: FDA-Public Use
  Company Number: RO-ASTRAZENECA-2015SE94357

PATIENT
  Age: 82 Year
  Sex: Male

DRUGS (2)
  1. BRILIQUE [Suspect]
     Active Substance: TICAGRELOR
     Indication: MYOCARDIAL INFARCTION
     Route: 048
     Dates: start: 20150614, end: 20150629
  2. ASA [Concomitant]
     Active Substance: ASPIRIN

REACTIONS (5)
  - Cardiogenic shock [Fatal]
  - Myocardial infarction [Unknown]
  - Acute left ventricular failure [Fatal]
  - Vascular stent thrombosis [Unknown]
  - Intentional product misuse [Unknown]
